FAERS Safety Report 6681257-3 (Version None)
Quarter: 2010Q2

REPORT INFORMATION
  Report Type: 
  Country: None (occurrence: None)
  Receive Date: 20100414
  Receipt Date: 20100205
  Transmission Date: 20101027
  Serious: No
  Sender: FDA-Public Use
  Company Number: US-KINGPHARMUSA00001-K201000135

PATIENT
  Age: 35 Year
  Sex: Male
  Weight: 83.9 kg

DRUGS (5)
  1. SKELAXIN [Suspect]
     Indication: MUSCULOSKELETAL PAIN
     Dosage: 400 MG, ONCE
     Route: 048
     Dates: start: 20100204, end: 20100204
  2. SKELAXIN [Suspect]
     Indication: NECK PAIN
  3. CELEXA [Suspect]
     Indication: ANXIETY
     Dosage: UNK
     Route: 048
  4. HYDROCODONE BITARTRATE [Concomitant]
     Indication: MUSCULOSKELETAL PAIN
     Dosage: UNK
     Route: 048
  5. HYDROCODONE BITARTRATE [Concomitant]
     Indication: NECK PAIN

REACTIONS (1)
  - HEADACHE [None]
